FAERS Safety Report 11188757 (Version 10)
Quarter: 2015Q4

REPORT INFORMATION
  Report Type: Spontaneous
  Country: CA (occurrence: CA)
  Receive Date: 20150615
  Receipt Date: 20151216
  Transmission Date: 20160304
  Serious: Yes (Other)
  Sender: FDA-Public Use
  Company Number: CA-ROCHE-1594032

PATIENT
  Age: 72 Year
  Sex: Female

DRUGS (8)
  1. XOLAIR [Suspect]
     Active Substance: OMALIZUMAB
     Indication: ASTHMA
     Route: 058
     Dates: start: 20150312
  2. XOLAIR [Suspect]
     Active Substance: OMALIZUMAB
     Route: 058
     Dates: start: 20150507
  3. XOLAIR [Suspect]
     Active Substance: OMALIZUMAB
     Route: 058
     Dates: start: 20150708
  4. XOLAIR [Suspect]
     Active Substance: OMALIZUMAB
     Route: 058
     Dates: start: 20150820
  5. ADVAIR HFA [Concomitant]
     Active Substance: FLUTICASONE PROPIONATE\SALMETEROL XINAFOATE
     Route: 065
  6. XOLAIR [Suspect]
     Active Substance: OMALIZUMAB
     Route: 058
     Dates: start: 20151016
  7. OMNARIS [Concomitant]
     Active Substance: CICLESONIDE
  8. AVAMYS [Concomitant]
     Active Substance: FLUTICASONE FUROATE

REACTIONS (28)
  - Asthma [Unknown]
  - Injection site pruritus [Recovered/Resolved]
  - Injection site bruising [Unknown]
  - Nasopharyngitis [Recovering/Resolving]
  - Alopecia [Recovering/Resolving]
  - Arthralgia [Unknown]
  - Fall [Unknown]
  - Blood pressure increased [Unknown]
  - Blood count abnormal [Unknown]
  - Vision blurred [Unknown]
  - Wheezing [Unknown]
  - Feeling abnormal [Unknown]
  - Dry mouth [Unknown]
  - Headache [Recovering/Resolving]
  - Injection site erythema [Not Recovered/Not Resolved]
  - Toothache [Unknown]
  - Anaemia [Recovering/Resolving]
  - Hypersensitivity [Unknown]
  - Insomnia [Unknown]
  - Peak expiratory flow rate decreased [Unknown]
  - Oral pain [Unknown]
  - Injection site pain [Recovered/Resolved]
  - Injection site rash [Recovered/Resolved]
  - Injection site swelling [Recovered/Resolved]
  - Chest discomfort [Unknown]
  - Rib fracture [Unknown]
  - Oral candidiasis [Recovered/Resolved]
  - Muscle spasms [Unknown]

NARRATIVE: CASE EVENT DATE: 20150312
